FAERS Safety Report 23522829 (Version 1)
Quarter: 2024Q1

REPORT INFORMATION
  Report Type: 
  Country: None (occurrence: None)
  Receive Date: 20240214
  Receipt Date: 20240214
  Transmission Date: 20240409
  Serious: No
  Sender: FDA-Public Use
  Company Number: CA-ROCHE-3235375

PATIENT

DRUGS (1)
  1. OCREVUS [Suspect]
     Active Substance: OCRELIZUMAB
     Dosage: 300 MG AT DAY 0 AND 14, THEN 600 MG EVERY 6 MONTH. LAST INFUSION DATE: 09/AUG/2022
     Dates: start: 20220725, end: 20230609

REACTIONS (6)
  - COVID-19 [None]
  - Anxiety [None]
  - Infection susceptibility increased [None]
  - Muscle tightness [None]
  - Muscular dystrophy [None]
  - Off label use [None]
